FAERS Safety Report 7921296-5 (Version None)
Quarter: 2011Q4

REPORT INFORMATION
  Report Type: 
  Country: None (occurrence: None)
  Receive Date: 20111117
  Receipt Date: 20111107
  Transmission Date: 20120403
  Serious: Yes (Life-Threatening, Hospitalization, Other)
  Sender: FDA-Public Use
  Company Number: US-BAYER-2011-058340

PATIENT
  Age: 29 Year
  Sex: Female
  Weight: 74.83 kg

DRUGS (2)
  1. YASMIN [Suspect]
     Indication: CONTRACEPTION
     Dosage: UNK
     Route: 048
     Dates: start: 20050701, end: 20080701
  2. DROSPIRENONE AND ETHINYL ESTRADIOL [Suspect]
     Indication: CONTRACEPTION
     Dosage: UNK
     Route: 048
     Dates: start: 20080701, end: 20090201

REACTIONS (11)
  - GALLBLADDER PAIN [None]
  - CHOLECYSTITIS ACUTE [None]
  - ANXIETY [None]
  - GALLBLADDER DISORDER [None]
  - BUNDLE BRANCH BLOCK LEFT [None]
  - PAIN [None]
  - INJURY [None]
  - EMOTIONAL DISTRESS [None]
  - HYPERTENSION [None]
  - ANHEDONIA [None]
  - FEAR [None]
